FAERS Safety Report 18826025 (Version 1)
Quarter: 2021Q1

REPORT INFORMATION
  Report Type: Spontaneous
  Country: IT (occurrence: IT)
  Receive Date: 20210202
  Receipt Date: 20210202
  Transmission Date: 20210419
  Serious: Yes (Disabling)
  Sender: FDA-Public Use
  Company Number: IT-BIOGEN-2021BI00971024

PATIENT
  Sex: Female

DRUGS (1)
  1. TECFIDERA [Suspect]
     Active Substance: DIMETHYL FUMARATE
     Indication: MULTIPLE SCLEROSIS
     Route: 048
     Dates: start: 2019

REACTIONS (8)
  - Drug ineffective [Unknown]
  - Multiple sclerosis relapse [Unknown]
  - Product storage error [Unknown]
  - Multiple sclerosis [Unknown]
  - Medication error [Unknown]
  - Multiple sclerosis [Unknown]
  - Hypoaesthesia [Recovered/Resolved]
  - Optic neuritis [Unknown]

NARRATIVE: CASE EVENT DATE: 20191223
